FAERS Safety Report 9413588 (Version 1)
Quarter: 2013Q3

REPORT INFORMATION
  Report Type: Spontaneous
  Country: US (occurrence: US)
  Receive Date: 20130716
  Receipt Date: 20130716
  Transmission Date: 20140515
  Serious: Yes (Hospitalization, Other)
  Sender: FDA-Public Use
  Company Number: SYM-2013-05020

PATIENT
  Age: 55 Year
  Sex: Female

DRUGS (13)
  1. CERAVE [Suspect]
     Indication: PRODUCT USED FOR UNKNOWN INDICATION
     Route: 061
     Dates: start: 20130506, end: 20130610
  2. CERAVE [Suspect]
     Route: 061
     Dates: start: 20130506, end: 20130610
  3. CERAVE [Suspect]
     Route: 061
     Dates: start: 20130506, end: 20130610
  4. KINSERASE SPF 30 [Suspect]
     Indication: PRODUCT USED FOR UNKNOWN INDICATION
     Route: 061
     Dates: start: 20130506, end: 20130610
  5. CERAVE [Suspect]
     Indication: PRODUCT USED FOR UNKNOWN INDICATION
     Route: 061
     Dates: start: 20130506, end: 20130610
  6. CERAVE [Suspect]
     Route: 061
     Dates: start: 20130506, end: 20130610
  7. SODIUM LAURYL SULFATE [Suspect]
     Route: 061
     Dates: start: 20130506, end: 20130610
  8. CERAVE [Suspect]
     Route: 061
     Dates: start: 20130506, end: 20130610
  9. NORVASC (AMLODIPINE BESILATE)(AMLODIPINE BESILATE) [Concomitant]
  10. LOSARTIN (LOSARTAN POTASSIUM)(LOSARTAN POTASSIUM) [Concomitant]
  11. FUROSEMIDE (FUROSEMIDE)(FUROSEMIDE) [Concomitant]
  12. CRESTOR (ROSUVASTATIN CALCIUM)(ROSUVASTATIN CALCIUM) [Concomitant]
  13. FLEXERIL (CYCLOBENZAPRINE HYDROCHLORIDE)(CYCLOBENZAPRINE HYDROCHLORIDE) [Concomitant]

REACTIONS (3)
  - Dyspnoea [None]
  - Atrioventricular block [None]
  - Aortic valve disease [None]
